FAERS Safety Report 20684996 (Version 3)
Quarter: 2022Q4

REPORT INFORMATION
  Report Type: Spontaneous
  Country: US (occurrence: US)
  Receive Date: 20220407
  Receipt Date: 20221004
  Transmission Date: 20230112
  Serious: No
  Sender: FDA-Public Use
  Company Number: US-PFIZER INC-2021444190

PATIENT
  Age: 72 Year
  Sex: Female
  Weight: 86.18 kg

DRUGS (2)
  1. IBRANCE [Suspect]
     Active Substance: PALBOCICLIB
     Indication: Breast cancer female
     Dosage: 125 MG
     Dates: end: 2021
  2. LETROZOLE [Suspect]
     Active Substance: LETROZOLE
     Indication: Breast cancer
     Dosage: UNK
     Dates: end: 2021

REACTIONS (7)
  - Fatigue [Unknown]
  - Neoplasm progression [Recovered/Resolved with Sequelae]
  - Neuralgia [Recovered/Resolved with Sequelae]
  - Brachial plexus injury [Recovered/Resolved with Sequelae]
  - Pain in extremity [Recovering/Resolving]
  - Paraesthesia [Recovering/Resolving]
  - Nerve injury [Unknown]

NARRATIVE: CASE EVENT DATE: 20210101
